FAERS Safety Report 18628214 (Version 1)
Quarter: 2020Q4

REPORT INFORMATION
  Report Type: Spontaneous
  Country: US (occurrence: US)
  Receive Date: 20201216
  Receipt Date: 20201216
  Transmission Date: 20210114
  Serious: Yes (Death)
  Sender: FDA-Public Use
  Company Number: None

PATIENT
  Age: 59 Year
  Sex: Male

DRUGS (8)
  1. DEXAMETHASON [Concomitant]
     Active Substance: DEXAMETHASONE
  2. LISINOPRIL. [Concomitant]
     Active Substance: LISINOPRIL
  3. OMEPRAZOLE. [Concomitant]
     Active Substance: OMEPRAZOLE
  4. GLEOSTINE [Suspect]
     Active Substance: LOMUSTINE
     Indication: BRAIN NEOPLASM MALIGNANT
     Dosage: ?          OTHER FREQUENCY:Q6WEEKS;?
     Route: 048
     Dates: start: 20201028
  5. LEVETIRACETA [Concomitant]
     Active Substance: LEVETIRACETAM
  6. ALPRAZOLAM. [Concomitant]
     Active Substance: ALPRAZOLAM
  7. SMZ/TMP [Concomitant]
     Active Substance: SULFAMETHOXAZOLE\TRIMETHOPRIM
  8. ALLOPURINOL. [Concomitant]
     Active Substance: ALLOPURINOL

REACTIONS (1)
  - Death [None]

NARRATIVE: CASE EVENT DATE: 20201203
